FAERS Safety Report 26007397 (Version 1)
Quarter: 2025Q4

REPORT INFORMATION
  Report Type: Report from Study
  Country: US (occurrence: US)
  Receive Date: 20251106
  Receipt Date: 20251106
  Transmission Date: 20260117
  Serious: Yes (Other)
  Sender: MALLINCKRODT
  Company Number: US-MALLINCKRODT-MNK202506744

PATIENT
  Sex: Female

DRUGS (1)
  1. CORTICOTROPIN [Suspect]
     Active Substance: CORTICOTROPIN
     Indication: Product used for unknown indication
     Dosage: UNKNOWN

REACTIONS (6)
  - Autoimmune disorder [Unknown]
  - Stress [Unknown]
  - Memory impairment [Unknown]
  - Swelling [Unknown]
  - Weight increased [Unknown]
  - Product dose omission in error [Unknown]
